FAERS Safety Report 13377897 (Version 1)
Quarter: 2017Q1

REPORT INFORMATION
  Report Type: Spontaneous
  Country: DE (occurrence: DE)
  Receive Date: 20170328
  Receipt Date: 20170328
  Transmission Date: 20170429
  Serious: Yes (Other)
  Sender: FDA-Public Use
  Company Number: DE-SEBELA IRELAND LIMITED-2017SEB00068

PATIENT
  Age: 37 Year
  Sex: Male

DRUGS (1)
  1. AZATHIOPRINE. [Suspect]
     Active Substance: AZATHIOPRINE
     Indication: THROMBOCYTOPENIC PURPURA
     Dosage: 50 MG, 1X/DAY
     Route: 048
     Dates: start: 20070215, end: 20140325

REACTIONS (1)
  - Acute hepatic failure [Recovered/Resolved]

NARRATIVE: CASE EVENT DATE: 20140325
